FAERS Safety Report 6382682-0 (Version None)
Quarter: 2009Q3

REPORT INFORMATION
  Report Type: 
  Country: None (occurrence: None)
  Receive Date: 20090928
  Receipt Date: 20090928
  Transmission Date: 20100115
  Serious: Yes (Life-Threatening, Hospitalization)
  Sender: FDA-Public Use
  Company Number: None

PATIENT
  Age: 34 Year
  Sex: Female
  Weight: 58.9676 kg

DRUGS (4)
  1. NEURONTIN [Suspect]
     Indication: BIPOLAR DISORDER
     Dosage: 3 CAPSULES DAILY PO
     Route: 048
     Dates: start: 20090515, end: 20090813
  2. NEURONTIN [Suspect]
     Indication: DEPRESSION
     Dosage: 3 CAPSULES DAILY PO
     Route: 048
     Dates: start: 20090515, end: 20090813
  3. NEURONTIN [Suspect]
     Indication: MUSCLE SPASMS
     Dosage: 3 CAPSULES DAILY PO
     Route: 048
     Dates: start: 20090515, end: 20090813
  4. NEURONTIN [Suspect]
     Indication: PAIN
     Dosage: 3 CAPSULES DAILY PO
     Route: 048
     Dates: start: 20090515, end: 20090813

REACTIONS (1)
  - SUICIDE ATTEMPT [None]
